FAERS Safety Report 20858828 (Version 1)
Quarter: 2022Q2

REPORT INFORMATION
  Report Type: Other
  Country: RO (occurrence: RO)
  Receive Date: 20220522
  Receipt Date: 20220522
  Transmission Date: 20220721
  Serious: Yes (Other)
  Sender: FDA-Public Use
  Company Number: RO-CELLTRION INC.-2022RO006773

PATIENT

DRUGS (1)
  1. RITUXIMAB [Suspect]
     Active Substance: RITUXIMAB
     Indication: Product used for unknown indication
     Route: 041

REACTIONS (11)
  - Syncope [Unknown]
  - Gastrointestinal oedema [Unknown]
  - Mesenteric panniculitis [Unknown]
  - Psychomotor hyperactivity [Unknown]
  - Ill-defined disorder [Unknown]
  - Metabolic disorder [Unknown]
  - Disorientation [Unknown]
  - Confusional state [Unknown]
  - Speech disorder [Unknown]
  - Abdominal pain [Unknown]
  - Off label use [Unknown]

NARRATIVE: CASE EVENT DATE: 20210801
